FAERS Safety Report 8366869-3 (Version None)
Quarter: 2012Q2

REPORT INFORMATION
  Report Type: 
  Country: None (occurrence: None)
  Receive Date: 20120517
  Receipt Date: 20120510
  Transmission Date: 20120825
  Serious: Yes (Hospitalization)
  Sender: FDA-Public Use
  Company Number: US-JNJFOC-20120312665

PATIENT
  Sex: Female
  Weight: 90.72 kg

DRUGS (7)
  1. NAPROSYN [Concomitant]
     Indication: RHEUMATOID ARTHRITIS
     Dates: start: 19970101
  2. PREDNISONE [Concomitant]
     Indication: RHEUMATOID ARTHRITIS
     Route: 048
     Dates: start: 19970101
  3. FOLIC ACID [Concomitant]
     Indication: RHEUMATOID ARTHRITIS
     Route: 048
     Dates: start: 19970101
  4. MULTI-VITAMINS [Concomitant]
     Indication: NUTRITIONAL SUPPORT
     Route: 048
  5. SIMPONI [Suspect]
     Route: 058
     Dates: start: 20091201
  6. SIMPONI [Suspect]
     Indication: RHEUMATOID ARTHRITIS
     Route: 058
     Dates: start: 20120325
  7. CALCIUM [Concomitant]
     Indication: NUTRITIONAL SUPPORT
     Route: 048

REACTIONS (7)
  - DYSPEPSIA [None]
  - DRUG INEFFECTIVE [None]
  - HYPERTENSION [None]
  - DRUG DOSE OMISSION [None]
  - BODY HEIGHT DECREASED [None]
  - DEVICE MALFUNCTION [None]
  - RHEUMATOID ARTHRITIS [None]
